FAERS Safety Report 17033507 (Version 2)
Quarter: 2020Q1

REPORT INFORMATION
  Report Type: Report from Study
  Country: US (occurrence: US)
  Receive Date: 20191114
  Receipt Date: 20200121
  Transmission Date: 20200409
  Serious: Yes (Hospitalization)
  Sender: FDA-Public Use
  Company Number: NVSC2019US036135

PATIENT
  Sex: Female
  Weight: 58.51 kg

DRUGS (1)
  1. COSENTYX [Suspect]
     Active Substance: SECUKINUMAB
     Indication: ANKYLOSING SPONDYLITIS
     Dosage: 150 MG, QMO
     Route: 058
     Dates: start: 201907, end: 201909

REACTIONS (3)
  - Sinusitis [Recovered/Resolved]
  - Hepatic enzyme decreased [Unknown]
  - Hepatic enzyme increased [Recovered/Resolved]
